FAERS Safety Report 8924568 (Version 1)
Quarter: 2012Q4

REPORT INFORMATION
  Report Type: Report from Study
  Country: FR (occurrence: FR)
  Receive Date: 20121126
  Receipt Date: 20121126
  Transmission Date: 20130627
  Serious: Yes (Life-Threatening, Other)
  Sender: FDA-Public Use
  Company Number: FR-ROCHE-1158707

PATIENT
  Age: 56 Year
  Sex: Male
  Weight: 65 kg

DRUGS (4)
  1. PEG-INTERFERON ALFA 2A [Suspect]
     Indication: CHRONIC MYELOID LEUKAEMIA
     Dosage: date of last dose pior to sae 6/jul/2011
     Route: 058
     Dates: start: 20110601, end: 20110615
  2. PEG-INTERFERON ALFA 2A [Suspect]
     Route: 058
     Dates: start: 20110615, end: 20110707
  3. NILOTINIB [Suspect]
     Indication: CHRONIC MYELOID LEUKAEMIA
     Dosage: date of last dose prior to sae 11/jul/2011
     Route: 048
     Dates: start: 20110706
  4. NILOTINIB [Suspect]
     Route: 048
     Dates: start: 20111012

REACTIONS (1)
  - Gamma-glutamyltransferase increased [Recovered/Resolved]
